FAERS Safety Report 20873856 (Version 1)
Quarter: 2022Q2

REPORT INFORMATION
  Report Type: Spontaneous
  Country: US (occurrence: None)
  Receive Date: 20220525
  Receipt Date: 20220525
  Transmission Date: 20220721
  Serious: Yes (Death)
  Sender: FDA-Public Use
  Company Number: None

PATIENT
  Sex: Male

DRUGS (7)
  1. ABIRATERONE ACETATE [Suspect]
     Active Substance: ABIRATERONE ACETATE
     Indication: Prostate cancer
     Dosage: TAKE 4 TABLETS BY MOUTH EACH DAY?
     Route: 048
     Dates: start: 20190517, end: 20220430
  2. ALLOPURINOL [Concomitant]
     Active Substance: ALLOPURINOL
  3. BENICAR TAB [Concomitant]
  4. IRON TAB [Concomitant]
  5. VITAMIN C CAP [Concomitant]
  6. XARELTO [Concomitant]
     Active Substance: RIVAROXABAN
  7. XYZAL TAB [Concomitant]

REACTIONS (1)
  - Death [None]
